FAERS Safety Report 7138225-7 (Version None)
Quarter: 2010Q4

REPORT INFORMATION
  Report Type: 
  Country: None (occurrence: None)
  Receive Date: 20101206
  Receipt Date: 20101125
  Transmission Date: 20110411
  Serious: Yes (Other)
  Sender: FDA-Public Use
  Company Number: US-RB-015981-10

PATIENT
  Age: 45 Year
  Sex: Male

DRUGS (1)
  1. DELSYM [Suspect]
     Dosage: PATIENT DRANK 3-4 OZ
     Route: 048

REACTIONS (3)
  - ABDOMINAL DISCOMFORT [None]
  - OVERDOSE [None]
  - VISION BLURRED [None]
